FAERS Safety Report 12792757 (Version 1)
Quarter: 2016Q3

REPORT INFORMATION
  Report Type: Spontaneous
  Country: US (occurrence: US)
  Receive Date: 20160929
  Receipt Date: 20160929
  Transmission Date: 20161109
  Serious: No
  Sender: FDA-Public Use
  Company Number: US-JAZZ-2016-US-011638

PATIENT
  Sex: Female

DRUGS (17)
  1. DEXEDRINE [Concomitant]
     Active Substance: DEXTROAMPHETAMINE SULFATE
  2. LASIX [Concomitant]
     Active Substance: FUROSEMIDE
  3. NORTRIPTYLINE HCL [Concomitant]
     Active Substance: NORTRIPTYLINE HYDROCHLORIDE
  4. AUGMENTIN [Concomitant]
     Active Substance: AMOXICILLIN\CLAVULANATE POTASSIUM
  5. CIPROFLOXACIN. [Concomitant]
     Active Substance: CIPROFLOXACIN
  6. OMEPRAZOLE. [Concomitant]
     Active Substance: OMEPRAZOLE
  7. XYREM [Suspect]
     Active Substance: SODIUM OXYBATE
     Indication: CATAPLEXY
     Dosage: DOSE ADJUSTMENT
     Dates: start: 201303, end: 201508
  8. IBUPROFEN. [Concomitant]
     Active Substance: IBUPROFEN
  9. PREDNISONE. [Concomitant]
     Active Substance: PREDNISONE
  10. ASTELIN [Concomitant]
     Active Substance: AZELASTINE HYDROCHLORIDE
  11. XYREM [Suspect]
     Active Substance: SODIUM OXYBATE
     Dosage: 4.5 G, BID
     Route: 048
     Dates: start: 201508
  12. XYREM [Suspect]
     Active Substance: SODIUM OXYBATE
     Indication: NARCOLEPSY
     Dosage: 2.25 G, BID
     Route: 048
     Dates: start: 201303, end: 201303
  13. MELOXICAM. [Concomitant]
     Active Substance: MELOXICAM
  14. SUCRALFATE. [Concomitant]
     Active Substance: SUCRALFATE
  15. ZYRTEC [Concomitant]
     Active Substance: CETIRIZINE HYDROCHLORIDE
  16. MULTIVITAMINS [Concomitant]
     Active Substance: VITAMINS
  17. PEG 3350 [Concomitant]
     Active Substance: POLYETHYLENE GLYCOL 3350

REACTIONS (11)
  - Paraesthesia [Unknown]
  - Weight increased [Unknown]
  - Snoring [Unknown]
  - Dehydration [Unknown]
  - Dermatitis contact [Not Recovered/Not Resolved]
  - Peripheral swelling [Unknown]
  - Paraesthesia oral [Unknown]
  - Motion sickness [Unknown]
  - Migraine [Not Recovered/Not Resolved]
  - Dyspnoea [Not Recovered/Not Resolved]
  - Weight decreased [Unknown]
